FAERS Safety Report 8460515-6 (Version None)
Quarter: 2012Q2

REPORT INFORMATION
  Report Type: 
  Country: None (occurrence: None)
  Receive Date: 20120622
  Receipt Date: 20120611
  Transmission Date: 20120825
  Serious: No
  Sender: FDA-Public Use
  Company Number: US-ASTRAZENECA-2012SE38997

PATIENT
  Age: 65 Year
  Sex: Male
  Weight: 98.9 kg

DRUGS (4)
  1. AVODART [Interacting]
     Indication: PROSTATIC SPECIFIC ANTIGEN
     Route: 065
  2. VITAMIN TAB [Concomitant]
  3. CRESTOR [Suspect]
     Indication: BLOOD CHOLESTEROL
     Route: 048
  4. ASPIRIN [Concomitant]

REACTIONS (2)
  - PROSTATIC SPECIFIC ANTIGEN INCREASED [None]
  - DRUG INTERACTION [None]
